FAERS Safety Report 18157665 (Version 25)
Quarter: 2021Q2

REPORT INFORMATION
  Report Type: Report from Study
  Country: IL (occurrence: IL)
  Receive Date: 20200817
  Receipt Date: 20210624
  Transmission Date: 20210717
  Serious: Yes (Hospitalization)
  Sender: FDA-Public Use
  Company Number: IL-EISAI MEDICAL RESEARCH-EC-2020-075487

PATIENT
  Age: 64 Year
  Sex: Female
  Weight: 75 kg

DRUGS (15)
  1. LENVATINIB [Suspect]
     Active Substance: LENVATINIB
     Route: 048
     Dates: start: 20200727, end: 20200803
  2. LENVATINIB [Suspect]
     Active Substance: LENVATINIB
     Indication: NON-SMALL CELL LUNG CANCER METASTATIC
     Dosage: STARTING DOSE AT 24MG, FLUCTUATED DOSAGE
     Route: 048
     Dates: start: 20191023, end: 20200526
  3. ELTROXIN [Concomitant]
     Active Substance: LEVOTHYROXINE
     Dates: start: 20200513, end: 20201129
  4. JANUET [Concomitant]
     Active Substance: METFORMIN HYDROCHLORIDE\SITAGLIPTIN PHOSPHATE
     Dates: start: 200701
  5. TOUJEO [Concomitant]
     Active Substance: INSULIN GLARGINE
     Route: 041
     Dates: start: 201908
  6. LENVATINIB [Suspect]
     Active Substance: LENVATINIB
     Route: 048
     Dates: start: 20200527, end: 20200608
  7. OPTALGIN [Concomitant]
     Active Substance: METAMIZOLE
     Dates: start: 20191001
  8. CARDILOC [Concomitant]
     Active Substance: BISOPROLOL FUMARATE
     Dates: start: 20191124
  9. NEXIUM [Concomitant]
     Active Substance: ESOMEPRAZOLE MAGNESIUM
     Dates: start: 201908
  10. VIEPAX [Concomitant]
     Active Substance: VENLAFAXINE HYDROCHLORIDE
     Dates: start: 201906, end: 20200809
  11. LENVATINIB [Suspect]
     Active Substance: LENVATINIB
     Dosage: STARTING DOSE AT 14 MG, FLUCTUATED DOSAGE
     Route: 048
     Dates: start: 20201013
  12. PREDNISONE. [Concomitant]
     Active Substance: PREDNISONE
     Dates: start: 20190926
  13. CODEINE [Concomitant]
     Active Substance: CODEINE
     Dates: start: 20191226
  14. FOSAVANCE [Concomitant]
     Active Substance: ALENDRONATE SODIUM\CHOLECALCIFEROL
     Dates: start: 20200124
  15. OXYGEN. [Concomitant]
     Active Substance: OXYGEN
     Dates: start: 20190805

REACTIONS (2)
  - Wound infection [Recovered/Resolved]
  - Femur fracture [Recovered/Resolved]

NARRATIVE: CASE EVENT DATE: 20200530
